FAERS Safety Report 7136004-8 (Version None)
Quarter: 2010Q4

REPORT INFORMATION
  Report Type: 
  Country: None (occurrence: None)
  Receive Date: 20101204
  Receipt Date: 20101122
  Transmission Date: 20110411
  Serious: Yes (Other)
  Sender: FDA-Public Use
  Company Number: FR-BAYER-2010-000700

PATIENT
  Sex: Female

DRUGS (1)
  1. IOPROMIDE [Suspect]
     Dosage: UNK

REACTIONS (2)
  - DYSPNOEA [None]
  - URTICARIA [None]
